FAERS Safety Report 5656272-9 (Version None)
Quarter: 2008Q1

REPORT INFORMATION
  Report Type: 
  Country: None (occurrence: None)
  Receive Date: 20080309
  Receipt Date: 20071008
  Transmission Date: 20080703
  Serious: No
  Sender: FDA-Public Use
  Company Number: US-BAYER-200712133BCC

PATIENT
  Age: 77 Year
  Sex: Female
  Weight: 54 kg

DRUGS (8)
  1. ALEVE [Suspect]
     Indication: BACK PAIN
     Dosage: TOTAL DAILY DOSE: 220 MG  UNIT DOSE: 220 MG
     Route: 048
  2. ALTACE [Concomitant]
  3. ATENOLOL [Concomitant]
  4. HYDROCHLOROTHIAZIDE [Concomitant]
  5. PROMETRIUM [Concomitant]
  6. ESTRACE [Concomitant]
  7. PRAVACHOL [Concomitant]
     Indication: BLOOD CHOLESTEROL INCREASED
  8. VITAMIN E [Concomitant]

REACTIONS (2)
  - BLOOD PRESSURE INCREASED [None]
  - HEPATIC ENZYME INCREASED [None]
